FAERS Safety Report 7844590-5 (Version None)
Quarter: 2011Q4

REPORT INFORMATION
  Report Type: 
  Country: None (occurrence: None)
  Receive Date: 20111025
  Receipt Date: 20111018
  Transmission Date: 20120403
  Serious: Yes (Other)
  Sender: FDA-Public Use
  Company Number: US-JNJFOC-20110906807

PATIENT
  Sex: Male
  Weight: 79.38 kg

DRUGS (2)
  1. REMICADE [Suspect]
     Route: 042
     Dates: end: 20110817
  2. REMICADE [Suspect]
     Indication: COLITIS ULCERATIVE
     Route: 042
     Dates: end: 20110801

REACTIONS (4)
  - INAPPROPRIATE SCHEDULE OF DRUG ADMINISTRATION [None]
  - ARTHRALGIA [None]
  - LUPUS-LIKE SYNDROME [None]
  - INFUSION RELATED REACTION [None]
